FAERS Safety Report 8112834-0 (Version None)
Quarter: 2012Q1

REPORT INFORMATION
  Report Type: 
  Country: None (occurrence: None)
  Receive Date: 20120203
  Receipt Date: 20120123
  Transmission Date: 20120608
  Serious: Yes (Hospitalization)
  Sender: FDA-Public Use
  Company Number: GB-GILEAD-2012-0050333

PATIENT
  Age: 62 Year
  Sex: Male

DRUGS (1)
  1. HEPSERA [Suspect]
     Indication: HEPATITIS B
     Route: 048

REACTIONS (13)
  - FANCONI SYNDROME [None]
  - URINE PHOSPHORUS INCREASED [None]
  - HYPERPHOSPHATASAEMIA [None]
  - HYPOURICAEMIA [None]
  - OSTEOMALACIA [None]
  - GLUCOSE URINE PRESENT [None]
  - FEMORAL NECK FRACTURE [None]
  - PAIN IN EXTREMITY [None]
  - URINE CALCIUM INCREASED [None]
  - HYPOPHOSPHATAEMIA [None]
  - ARTHRALGIA [None]
  - URINE URIC ACID INCREASED [None]
  - AMINOACIDURIA [None]
